FAERS Safety Report 13900158 (Version 2)
Quarter: 2018Q4

REPORT INFORMATION
  Report Type: Spontaneous
  Country: DE (occurrence: DE)
  Receive Date: 20170824
  Receipt Date: 20181205
  Transmission Date: 20190204
  Serious: Yes (Life-Threatening, Hospitalization, Other)
  Sender: FDA-Public Use
  Company Number: DE-VELOXIS PHARMACEUTICALS-2025042

PATIENT
  Age: 58 Year
  Sex: Female

DRUGS (4)
  1. TACROLIMUS. [Suspect]
     Active Substance: TACROLIMUS
     Indication: IMMUNOSUPPRESSANT DRUG THERAPY
  2. MYCOPHENOLATE MOFETIL. [Suspect]
     Active Substance: MYCOPHENOLATE MOFETIL
     Indication: IMMUNOSUPPRESSION
  3. FLUCONAZOLE. [Suspect]
     Active Substance: FLUCONAZOLE
     Indication: ANTIFUNGAL TREATMENT
  4. PREDNISONE. [Suspect]
     Active Substance: PREDNISONE
     Indication: IMMUNOSUPPRESSION

REACTIONS (6)
  - Shock haemorrhagic [Recovering/Resolving]
  - Multiple organ dysfunction syndrome [Recovering/Resolving]
  - Candida infection [Recovering/Resolving]
  - Haemorrhage [Recovering/Resolving]
  - Aspiration [Recovering/Resolving]
  - Vascular pseudoaneurysm [Recovering/Resolving]
